FAERS Safety Report 25111229 (Version 1)
Quarter: 2025Q1

REPORT INFORMATION
  Report Type: Spontaneous
  Country: NL (occurrence: NL)
  Receive Date: 20250324
  Receipt Date: 20250324
  Transmission Date: 20250409
  Serious: Yes (Life-Threatening, Hospitalization)
  Sender: AMGEN
  Company Number: None

PATIENT
  Age: 75 Year
  Sex: Female
  Weight: 58 kg

DRUGS (1)
  1. ROMOSOZUMAB [Suspect]
     Active Substance: ROMOSOZUMAB
     Indication: Osteoporotic fracture
     Dosage: 210 MG SC. 1X/MONTH. DURING 12 MONTHS
     Route: 065
     Dates: start: 20241229, end: 20250209

REACTIONS (2)
  - Malignant hypertension [Unknown]
  - Basal ganglia haemorrhage [Unknown]
